FAERS Safety Report 17784399 (Version 1)
Quarter: 2020Q2

REPORT INFORMATION
  Report Type: Spontaneous
  Country: US (occurrence: US)
  Receive Date: 20200513
  Receipt Date: 20200513
  Transmission Date: 20200714
  Serious: Yes (Death)
  Sender: FDA-Public Use
  Company Number: None

PATIENT
  Age: 81 Year
  Sex: Female

DRUGS (1)
  1. AZACITIDINE SDV 100MG [Suspect]
     Active Substance: AZACITIDINE
     Dosage: ?          OTHER FREQUENCY:UNKNOWN;?
     Route: 041
     Dates: start: 202003, end: 202004

REACTIONS (1)
  - Death [None]

NARRATIVE: CASE EVENT DATE: 20200421
